FAERS Safety Report 5957565-8 (Version None)
Quarter: 2008Q4

REPORT INFORMATION
  Report Type: 
  Country: None (occurrence: None)
  Receive Date: 20081117
  Receipt Date: 20081117
  Transmission Date: 20090506
  Serious: Yes (Other)
  Sender: FDA-Public Use
  Company Number: None

PATIENT
  Sex: Female
  Weight: 71.6683 kg

DRUGS (1)
  1. NITROFURANTOIN [Suspect]
     Indication: URINARY TRACT INFECTION
     Dosage: 100MG 2 A DAY FOR 7 DAYS (QUIT 1/2 THROUGH)
     Dates: start: 20081025

REACTIONS (5)
  - ARTHRALGIA [None]
  - HYPOAESTHESIA [None]
  - MOOD ALTERED [None]
  - PAIN IN EXTREMITY [None]
  - PARAESTHESIA [None]
